FAERS Safety Report 4348985-6 (Version None)
Quarter: 2004Q2

REPORT INFORMATION
  Report Type: 
  Country: None (occurrence: None)
  Receive Date: 20040428
  Receipt Date: 20040421
  Transmission Date: 20050107
  Serious: Yes (Other)
  Sender: FDA-Public Use
  Company Number: CA-BRISTOL-MYERS SQUIBB COMPANY-12568465

PATIENT
  Age: 73 Year
  Sex: Female

DRUGS (12)
  1. TEQUIN [Suspect]
     Route: 048
     Dates: start: 20040420, end: 20040420
  2. GLYBURIDE [Concomitant]
     Indication: DIABETES MELLITUS
     Route: 048
  3. METFORMIN HCL [Concomitant]
     Indication: DIABETES MELLITUS
     Route: 048
  4. ESTROGEN [Concomitant]
  5. PROGESTERONE [Concomitant]
  6. PREDNISONE [Concomitant]
  7. ALLOPURINOL TAB [Concomitant]
  8. ACCUPRIL [Concomitant]
  9. DIGOXIN [Concomitant]
  10. ALPRAZOLAM [Concomitant]
  11. VERAPAMIL [Concomitant]
  12. THEOPHYLLINE [Concomitant]

REACTIONS (1)
  - HYPOGLYCAEMIA [None]
